FAERS Safety Report 10099974 (Version 2)
Quarter: 2014Q2

REPORT INFORMATION
  Report Type: Spontaneous
  Country: US (occurrence: US)
  Receive Date: 20140423
  Receipt Date: 20140507
  Transmission Date: 20141212
  Serious: Yes (Other)
  Sender: FDA-Public Use
  Company Number: US-BRISTOL-MYERS SQUIBB COMPANY-20625166

PATIENT
  Age: 67 Year
  Sex: Female
  Weight: 52.15 kg

DRUGS (1)
  1. BARACLUDE [Suspect]
     Indication: HEPATITIS B
     Dates: start: 2013

REACTIONS (2)
  - Therapeutic response decreased [Unknown]
  - Alcohol interaction [Unknown]
